FAERS Safety Report 22103299 (Version 1)
Quarter: 2023Q1

REPORT INFORMATION
  Report Type: Spontaneous
  Country: US (occurrence: None)
  Receive Date: 20230315
  Receipt Date: 20230315
  Transmission Date: 20230417
  Serious: Yes (Life-Threatening, Hospitalization, Disabling, Other)
  Sender: FDA-Public Use
  Company Number: None

PATIENT
  Age: 78 Year
  Sex: Male
  Weight: 79.65 kg

DRUGS (1)
  1. XARELTO [Suspect]
     Active Substance: RIVAROXABAN
     Indication: Thrombosis
     Dosage: 1 TABLET EVERY OTHER DAY OTHER  ORAL?
     Route: 048
     Dates: start: 20180903, end: 20230308

REACTIONS (12)
  - Arterial occlusive disease [None]
  - Spinal epidural haemorrhage [None]
  - Spinal cord compression [None]
  - Anaesthetic complication [None]
  - Procedural vomiting [None]
  - Haematemesis [None]
  - Diplegia [None]
  - Procedural pain [None]
  - Puncture site pain [None]
  - Gastric haemorrhage [None]
  - Intestinal haemorrhage [None]
  - Extremity necrosis [None]

NARRATIVE: CASE EVENT DATE: 20230307
